FAERS Safety Report 19855978 (Version 1)
Quarter: 2021Q3

REPORT INFORMATION
  Report Type: Spontaneous
  Country: US (occurrence: US)
  Receive Date: 20210920
  Receipt Date: 20210920
  Transmission Date: 20211014
  Serious: No
  Sender: FDA-Public Use
  Company Number: None

PATIENT
  Age: 78 Year
  Sex: Male
  Weight: 88 kg

DRUGS (2)
  1. IMDEVIMAB (INV?IMDEVIMAB 120MG/ML INJ,SOLN) [Suspect]
     Active Substance: IMDEVIMAB
     Route: 042
     Dates: start: 20210916, end: 20210916
  2. CASIRIVIMAB (INV?CASIRIVIMAB 120MG/ML INJ,SOLN) [Suspect]
     Active Substance: CASIRIVIMAB
     Route: 042
     Dates: start: 20210916, end: 20210916

REACTIONS (4)
  - Incontinence [None]
  - Condition aggravated [None]
  - Asthenia [None]
  - Bedridden [None]

NARRATIVE: CASE EVENT DATE: 20210916
